FAERS Safety Report 6791333-2 (Version None)
Quarter: 2010Q2

REPORT INFORMATION
  Report Type: 
  Country: None (occurrence: None)
  Receive Date: 20100624
  Receipt Date: 20100614
  Transmission Date: 20101027
  Serious: Yes (Other)
  Sender: FDA-Public Use
  Company Number: MX-ROCHE-709563

PATIENT
  Age: 40 Week
  Sex: Male

DRUGS (1)
  1. AVASTIN [Suspect]
     Indication: RETINOPATHY OF PREMATURITY
     Route: 031

REACTIONS (1)
  - OCULAR VASCULAR DISORDER [None]
